FAERS Safety Report 7969276-8 (Version None)
Quarter: 2011Q4

REPORT INFORMATION
  Report Type: 
  Country: None (occurrence: None)
  Receive Date: 20111209
  Receipt Date: 20111129
  Transmission Date: 20120403
  Serious: Yes (Other)
  Sender: FDA-Public Use
  Company Number: BR-ROCHE-1018851

PATIENT
  Sex: Female

DRUGS (1)
  1. OMALIZUMAB [Suspect]
     Indication: PRODUCT USED FOR UNKNOWN INDICATION

REACTIONS (6)
  - IMMUNODEFICIENCY [None]
  - INSOMNIA [None]
  - TREMOR [None]
  - ASTHMA [None]
  - MUSCLE SPASMS [None]
  - HERPES VIRUS INFECTION [None]
